FAERS Safety Report 8304152-2 (Version None)
Quarter: 2012Q2

REPORT INFORMATION
  Report Type: 
  Country: None (occurrence: None)
  Receive Date: 20120423
  Receipt Date: 20120416
  Transmission Date: 20120825
  Serious: Yes (Other)
  Sender: FDA-Public Use
  Company Number: US-JNJFOC-20120202791

PATIENT
  Sex: Female
  Weight: 70 kg

DRUGS (3)
  1. STELARA [Suspect]
     Indication: PSORIASIS
     Route: 058
     Dates: start: 20101215, end: 20111001
  2. HUMIRA [Suspect]
     Indication: PSORIASIS
     Route: 058
     Dates: start: 20090601, end: 20101215
  3. SORIATANE [Concomitant]
     Indication: PSORIASIS
     Route: 048

REACTIONS (1)
  - NON-HODGKIN'S LYMPHOMA [None]
